FAERS Safety Report 7786339-0 (Version None)
Quarter: 2011Q3

REPORT INFORMATION
  Report Type: 
  Country: None (occurrence: None)
  Receive Date: 20110929
  Receipt Date: 20110926
  Transmission Date: 20111222
  Serious: Yes (Life-Threatening)
  Sender: FDA-Public Use
  Company Number: PHHY2011FR85405

PATIENT
  Age: 4 Year
  Sex: Male

DRUGS (2)
  1. NEORAL [Suspect]
     Route: 048
  2. NEORAL [Suspect]
     Indication: NEPHROTIC SYNDROME
     Dosage: 0.6 ML, BID
     Route: 048
     Dates: start: 20110621, end: 20110713

REACTIONS (3)
  - HYPERTENSION [None]
  - HYPERTENSIVE ENCEPHALOPATHY [None]
  - BLOOD PRESSURE INCREASED [None]
